FAERS Safety Report 9674624 (Version 1)
Quarter: 2013Q4

REPORT INFORMATION
  Report Type: Spontaneous
  Country: US (occurrence: None)
  Receive Date: 20131106
  Receipt Date: 20131106
  Transmission Date: 20140711
  Serious: Yes (Other)
  Sender: FDA-Public Use
  Company Number: None

PATIENT
  Age: 51 Year
  Sex: Female
  Weight: 74.84 kg

DRUGS (1)
  1. MIRVASO [Suspect]
     Indication: ROSACEA
     Dosage: PER SIZE AMOUNT ONCE DAILY APPLIES TO A SURFACE, USUALLY THE SKIN
     Route: 048
     Dates: start: 20131019, end: 20131024

REACTIONS (6)
  - Flushing [None]
  - Erythema [None]
  - Feeling hot [None]
  - Sunburn [None]
  - Stress [None]
  - Fear [None]
